FAERS Safety Report 5368724-X (Version None)
Quarter: 2007Q2

REPORT INFORMATION
  Report Type: 
  Country: None (occurrence: None)
  Receive Date: 20070625
  Receipt Date: 20070430
  Transmission Date: 20071010
  Serious: Yes (Other)
  Sender: FDA-Public Use
  Company Number: US-BRISTOL-MYERS SQUIBB COMPANY-13765375

PATIENT
  Age: 57 Year
  Sex: Female

DRUGS (7)
  1. ORENCIA [Suspect]
  2. METHOTREXATE [Concomitant]
  3. PREDNISONE ACETATE [Concomitant]
  4. LUNESTA [Concomitant]
  5. LOTREL [Concomitant]
  6. SINGULAIR [Concomitant]
  7. PROVIGIL [Concomitant]

REACTIONS (4)
  - BLOOD PRESSURE INCREASED [None]
  - DYSPNOEA [None]
  - HEADACHE [None]
  - MALAISE [None]
